FAERS Safety Report 8723527 (Version 2)
Quarter: 2012Q4

REPORT INFORMATION
  Report Type: 
  Country: TW (occurrence: TW)
  Receive Date: 20120814
  Receipt Date: 20120904
  Transmission Date: 20130627
  Serious: Yes (Hospitalization, Other)
  Sender: FDA-Public Use
  Company Number: TW-AMGEN-TWNSP2012047266

PATIENT
  Age: 65 Year
  Sex: Female

DRUGS (6)
  1. ENBREL [Suspect]
     Indication: RHEUMATOID ARTHRITIS
     Dosage: 25 mg, 2x/week
     Route: 058
     Dates: start: 20100803, end: 20120722
  2. METHOTREXATE [Concomitant]
     Dosage: 3 DF, weekly
     Dates: start: 2009
  3. HYDROXYCHLOROQUINE [Concomitant]
     Dosage: 1 DF, 1x/day
     Dates: start: 20100316, end: 20110404
  4. ASPIRIN [Concomitant]
     Dosage: 1 DF, 1x/day
     Dates: start: 20120222, end: 20120516
  5. CELECOXIB [Concomitant]
     Dosage: 1 DF, 1x/day
     Dates: start: 20100316, end: 20120530
  6. ETORICOXIB [Concomitant]
     Dosage: 1.5 DF, 1x/day
     Dates: start: 20120530

REACTIONS (14)
  - Hepatic neoplasm [Unknown]
  - Tumour haemorrhage [Unknown]
  - Acute respiratory failure [Unknown]
  - Haematoma [Recovered/Resolved]
  - Peritoneal haemorrhage [Unknown]
  - Hepatic haemorrhage [Unknown]
  - Ascites [Unknown]
  - Renal cyst [Unknown]
  - Lung infiltration [Unknown]
  - Inflammation [Unknown]
  - Pleural effusion [Unknown]
  - Splenomegaly [Unknown]
  - Liver disorder [Unknown]
  - Hepatic steatosis [Unknown]
